FAERS Safety Report 15009114 (Version 2)
Quarter: 2018Q2

REPORT INFORMATION
  Report Type: Spontaneous
  Country: FR (occurrence: FR)
  Receive Date: 20180614
  Receipt Date: 20180629
  Transmission Date: 20180711
  Serious: Yes (Hospitalization)
  Sender: FDA-Public Use
  Company Number: FR-TEVA-2018-FR-906073

PATIENT
  Age: 63 Year
  Sex: Male
  Weight: 84 kg

DRUGS (6)
  1. OXALIPLATIN INJECTION 50MG/10 ML+100MG/20ML [Suspect]
     Active Substance: OXALIPLATIN
     Indication: ADENOCARCINOMA OF COLON
     Route: 041
     Dates: start: 2011, end: 2015
  2. AVASTIN [Concomitant]
     Active Substance: BEVACIZUMAB
     Route: 041
     Dates: start: 20140702, end: 20141016
  3. FLUOROURACIL. [Suspect]
     Active Substance: FLUOROURACIL
     Indication: ADENOCARCINOMA OF COLON
     Route: 041
     Dates: start: 2011, end: 2015
  4. FLUOROURACIL. [Suspect]
     Active Substance: FLUOROURACIL
     Dosage: IDEA FOLFOX 6 DU 28/07/2011 AU 06/10/2011 PUIS FOLFOX DU 02/07/2014 AU 02/10/2014
     Dates: start: 20110728, end: 20141002
  5. OXALIPLATIN INJECTION 50MG/10 ML+100MG/20ML [Suspect]
     Active Substance: OXALIPLATIN
     Dosage: IDEA FOLFOX 6 DU 28/07/2011 AU 06/10/2011 PUIS FOLFOX DU 02/07/2014 AU 02/10/2014
     Dates: start: 20110728, end: 20141002
  6. AVASTIN [Concomitant]
     Active Substance: BEVACIZUMAB
     Indication: ADENOCARCINOMA OF COLON
     Route: 041
     Dates: start: 2014, end: 2014

REACTIONS (1)
  - Acute myeloid leukaemia [Not Recovered/Not Resolved]

NARRATIVE: CASE EVENT DATE: 20180406
